FAERS Safety Report 10617712 (Version 2)
Quarter: 2014Q4

REPORT INFORMATION
  Report Type: Spontaneous
  Country: US (occurrence: US)
  Receive Date: 20141201
  Receipt Date: 20141201
  Transmission Date: 20150529
  Serious: Yes (Hospitalization)
  Sender: FDA-Public Use
  Company Number: JP-CELGENE-087-50794-14013476

PATIENT
  Age: 79 Year
  Sex: Male
  Weight: 46 kg

DRUGS (1)
  1. VIDAZA [Suspect]
     Active Substance: AZACITIDINE
     Indication: MYELODYSPLASTIC SYNDROME
     Dosage: 110 MILLIGRAM
     Route: 041
     Dates: start: 20131113, end: 20131119

REACTIONS (3)
  - Pancytopenia [Recovering/Resolving]
  - Pericarditis [Recovered/Resolved]
  - Pleurisy [Recovered/Resolved]

NARRATIVE: CASE EVENT DATE: 20131121
